FAERS Safety Report 13420622 (Version 1)
Quarter: 2017Q2

REPORT INFORMATION
  Report Type: Spontaneous
  Country: US (occurrence: US)
  Receive Date: 20170408
  Receipt Date: 20170408
  Transmission Date: 20170830
  Serious: Yes (Other)
  Sender: FDA-Public Use
  Company Number: PHEH2017US009137

PATIENT
  Age: 87 Year
  Weight: 57.6 kg

DRUGS (13)
  1. ACETAMINOPHEN. [Concomitant]
     Active Substance: ACETAMINOPHEN
     Indication: PRODUCT USED FOR UNKNOWN INDICATION
     Dosage: 650 MG, Q6H
     Route: 048
  2. CALCIUM CARBONATE. [Concomitant]
     Active Substance: CALCIUM CARBONATE
     Dosage: UNK, TID
     Route: 048
  3. VITAMIN B12 [Concomitant]
     Active Substance: CYANOCOBALAMIN
     Indication: PRODUCT USED FOR UNKNOWN INDICATION
     Dosage: 1000 UG, UNK (TAKE 1  IN THE MORNING)
     Route: 048
  4. CALCIUM CARBONATE. [Concomitant]
     Active Substance: CALCIUM CARBONATE
     Indication: HYPOCALCAEMIA
     Dosage: 2500 MG, BID
     Route: 048
  5. FERROUS SULFATE. [Concomitant]
     Active Substance: FERROUS SULFATE
     Indication: PRODUCT USED FOR UNKNOWN INDICATION
     Dosage: 325 MG, BID
     Route: 048
  6. DOCUSATE SODIUM. [Concomitant]
     Active Substance: DOCUSATE SODIUM
     Indication: PRODUCT USED FOR UNKNOWN INDICATION
     Dosage: 100 MG, BID
     Route: 048
  7. PALBOCICLIB [Suspect]
     Active Substance: PALBOCICLIB
     Dosage: 125 MG, UNK
     Route: 048
     Dates: start: 20170205
  8. XGEVA [Concomitant]
     Active Substance: DENOSUMAB
     Indication: METASTASES TO BONE
     Dosage: UNK
     Route: 065
     Dates: start: 20160926, end: 20161031
  9. ANASTROZOLE. [Concomitant]
     Active Substance: ANASTROZOLE
     Indication: PRODUCT USED FOR UNKNOWN INDICATION
     Dosage: UNK
     Route: 065
  10. LETROZOLE. [Suspect]
     Active Substance: LETROZOLE
     Indication: BREAST CANCER METASTATIC
     Dosage: 2.5 MG, QD
     Route: 048
  11. PALBOCICLIB [Suspect]
     Active Substance: PALBOCICLIB
     Indication: BREAST CANCER METASTATIC
     Dosage: 75 MG, QD (1-21 DAYS)
     Route: 048
  12. FOLIC ACID. [Concomitant]
     Active Substance: FOLIC ACID
     Indication: PRODUCT USED FOR UNKNOWN INDICATION
     Dosage: 1 MG, QD
     Route: 048
  13. CALAC [Concomitant]
     Indication: PRODUCT USED FOR UNKNOWN INDICATION
     Dosage: 100 MG, UNK
     Route: 065

REACTIONS (44)
  - Metastases to spine [Unknown]
  - Pain [Unknown]
  - Breast discomfort [Unknown]
  - Microangiopathy [Unknown]
  - Intervertebral disc degeneration [Unknown]
  - Chronic gastritis [Unknown]
  - Hypocalcaemia [Unknown]
  - Cyst [Unknown]
  - Gastrointestinal disorder [Unknown]
  - Pleural effusion [Unknown]
  - Arteriosclerosis [Unknown]
  - Granuloma [Unknown]
  - Blood chloride increased [Unknown]
  - Abdominal pain [Unknown]
  - Weight decreased [Unknown]
  - Decreased appetite [Unknown]
  - Osteochondrosis [Unknown]
  - Mass [Unknown]
  - Platelet count decreased [Unknown]
  - Uterine leiomyoma [Unknown]
  - Blood glucose increased [Unknown]
  - Neutrophil percentage increased [Unknown]
  - Nausea [Unknown]
  - Hepatic cyst [Unknown]
  - Gastric disorder [Unknown]
  - Oedema [Unknown]
  - Blood urea increased [Unknown]
  - Blood creatinine increased [Unknown]
  - Haemoglobin decreased [Unknown]
  - Intervertebral disc disorder [Unknown]
  - Cardiomegaly [Unknown]
  - Gastrointestinal oedema [Unknown]
  - Carbon dioxide decreased [Unknown]
  - Metastases to bone [Unknown]
  - Haematocrit decreased [Unknown]
  - Aortic aneurysm [Unknown]
  - Endometrial thickening [Unknown]
  - Red blood cell count decreased [Unknown]
  - Osteosclerosis [Unknown]
  - Lymphocyte count decreased [Unknown]
  - Pelvic fluid collection [Unknown]
  - Lymphadenopathy [Unknown]
  - Blood albumin decreased [Unknown]
  - Red cell distribution width increased [Unknown]

NARRATIVE: CASE EVENT DATE: 20160718
